FAERS Safety Report 4324165-5 (Version None)
Quarter: 2004Q1

REPORT INFORMATION
  Report Type: 
  Country: None (occurrence: None)
  Receive Date: 20040326
  Receipt Date: 20040105
  Transmission Date: 20041129
  Serious: No
  Sender: FDA-Public Use
  Company Number: US-GLAXOSMITHKLINE-A0491303A

PATIENT
  Age: 74 Year
  Sex: Female

DRUGS (4)
  1. ADVAIR DISKUS 100/50 [Suspect]
     Indication: ASTHMA
     Dosage: 2 PER DAY
     Route: 055
  2. SEREVENT [Suspect]
     Indication: ASTHMA
     Dosage: 2MCG TWICE PER DAY
     Route: 055
  3. ATROVENT [Concomitant]
  4. ALBUTEROL [Concomitant]

REACTIONS (2)
  - DYSPHONIA [None]
  - HOARSENESS [None]
